FAERS Safety Report 8427816-9 (Version None)
Quarter: 2012Q2

REPORT INFORMATION
  Report Type: 
  Country: None (occurrence: None)
  Receive Date: 20120323
  Receipt Date: 20111129
  Transmission Date: 20120825
  Serious: Yes (Other)
  Sender: FDA-Public Use
  Company Number: 163-21880-11114151

PATIENT
  Age: 66 Year
  Sex: Male

DRUGS (6)
  1. PEPCID [Concomitant]
  2. ACETAMINOPHEN [Concomitant]
  3. DECADRON [Concomitant]
  4. ACYCLOVIR [Concomitant]
  5. M.V.I. [Concomitant]
  6. REVLIMID [Suspect]
     Indication: MULTIPLE MYELOMA
     Dosage: 25 MG, 1 IN 1 D, PO
     Route: 048
     Dates: start: 20111001

REACTIONS (1)
  - JUGULAR VEIN THROMBOSIS [None]
